FAERS Safety Report 9105002 (Version 2)
Quarter: 2013Q1

REPORT INFORMATION
  Report Type: Spontaneous
  Country: US (occurrence: US)
  Receive Date: 20130220
  Receipt Date: 20130312
  Transmission Date: 20140127
  Serious: Yes (Other)
  Sender: FDA-Public Use
  Company Number: US-AMGEN-USASP2013009731

PATIENT
  Age: 72 Year
  Sex: Male

DRUGS (16)
  1. XGEVA [Suspect]
     Indication: METASTASES TO BONE
     Dosage: UNK
     Dates: start: 20130207
  2. MAALOX                             /00082501/ [Concomitant]
     Indication: METASTASES TO BONE
     Dosage: UNK
  3. AMOXICILLIN [Concomitant]
     Dosage: UNK
     Dates: start: 20130201, end: 20130210
  4. AMOXICILLIN [Concomitant]
     Dates: start: 20130201, end: 20130210
  5. MAGNESIUM [Concomitant]
  6. MAGNESIUM [Concomitant]
  7. MAGNESIUM [Concomitant]
  8. MAGNESIUM [Concomitant]
  9. PROVENGE [Concomitant]
  10. LUPRON [Concomitant]
  11. VITAMIN B12                        /00056201/ [Concomitant]
  12. CALCIUM WITH VITAMIN D             /00944201/ [Concomitant]
     Dates: start: 20130207
  13. IBUPROFEN [Concomitant]
     Dosage: 400 MG, Q6H
  14. IBUPROFEN [Concomitant]
     Dates: start: 2013
  15. METAMUCIL                          /00029101/ [Concomitant]
  16. OMEGA 3                            /01334101/ [Concomitant]

REACTIONS (23)
  - Atrial fibrillation [Unknown]
  - Muscular dystrophy [Unknown]
  - Faecal incontinence [Unknown]
  - Back pain [Unknown]
  - Abdominal discomfort [Unknown]
  - Gastric disorder [Unknown]
  - Bone pain [Unknown]
  - Feeling abnormal [Unknown]
  - Bowel movement irregularity [Unknown]
  - Proctalgia [Unknown]
  - Anorectal discomfort [Unknown]
  - Scrotal pain [Unknown]
  - Scrotal disorder [Unknown]
  - Discomfort [Unknown]
  - Hot flush [Unknown]
  - Malaise [Unknown]
  - Feeling hot [Unknown]
  - Feeling cold [Unknown]
  - Weight decreased [Unknown]
  - Arthritis [Unknown]
  - Restless legs syndrome [Unknown]
  - Nausea [Unknown]
  - Headache [Unknown]
